FAERS Safety Report 9357725 (Version 3)
Quarter: 2013Q4

REPORT INFORMATION
  Report Type: Spontaneous
  Country: BR (occurrence: BR)
  Receive Date: 20130620
  Receipt Date: 20131015
  Transmission Date: 20140711
  Serious: Yes (Other)
  Sender: FDA-Public Use
  Company Number: BR-PFIZER INC-2013180515

PATIENT
  Age: 45 Year
  Sex: Female
  Weight: 60 kg

DRUGS (1)
  1. ADVIL [Suspect]
     Dosage: STRENGTH 400 MG, UNK

REACTIONS (2)
  - Purpura [Unknown]
  - Hypersensitivity [Unknown]
